FAERS Safety Report 25914027 (Version 1)
Quarter: 2025Q4

REPORT INFORMATION
  Report Type: Spontaneous
  Country: CN (occurrence: CN)
  Receive Date: 20251013
  Receipt Date: 20251013
  Transmission Date: 20260118
  Serious: Yes (Other)
  Sender: BAYER HEALTHCARE PHARMACEUTICALS INC.
  Company Number: CN-BAYER-2025A134556

PATIENT
  Age: 66 Year
  Sex: Female
  Weight: 57 kg

DRUGS (6)
  1. GLUCOBAY [Suspect]
     Active Substance: ACARBOSE
     Indication: Type 2 diabetes mellitus
     Dosage: 100 MG, QD
     Route: 048
     Dates: start: 20250908, end: 20250909
  2. GLUCOBAY [Suspect]
     Active Substance: ACARBOSE
     Indication: Diabetic neuropathy
     Dosage: 100 MG, TID
     Route: 048
     Dates: start: 20250910, end: 20250912
  3. INSULIN DEGLUDEC\LIRAGLUTIDE [Suspect]
     Active Substance: INSULIN DEGLUDEC\LIRAGLUTIDE
     Indication: Type 2 diabetes mellitus
     Dosage: 16 U, HS
     Route: 058
     Dates: start: 20250910, end: 20250912
  4. INSULIN ASPART [Concomitant]
     Active Substance: INSULIN ASPART
     Indication: Type 2 diabetes mellitus
     Dosage: 16 U, OM, BEFORE BREAKFAST
     Route: 058
     Dates: start: 20250908, end: 20250910
  5. INSULIN ASPART [Concomitant]
     Active Substance: INSULIN ASPART
     Indication: Type 2 diabetes mellitus
     Dosage: 14 U, HS, BEFORE DINNER
     Route: 058
     Dates: start: 20250908, end: 20250910
  6. HENAGLIFLOZIN PROLINE [Concomitant]
     Active Substance: HENAGLIFLOZIN PROLINE
     Indication: Diabetic neuropathy
     Dosage: 10 MG, QD
     Route: 048
     Dates: start: 20250910, end: 20250914

REACTIONS (2)
  - Abdominal distension [Recovering/Resolving]
  - Gastrooesophageal reflux disease [Recovering/Resolving]

NARRATIVE: CASE EVENT DATE: 20250910
